FAERS Safety Report 14930398 (Version 1)
Quarter: 2018Q2

REPORT INFORMATION
  Report Type: Spontaneous
  Country: DE (occurrence: DE)
  Receive Date: 20180523
  Receipt Date: 20180523
  Transmission Date: 20180711
  Serious: Yes (Other)
  Sender: FDA-Public Use
  Company Number: DE-GEHC-2018CSU001980

PATIENT

DRUGS (7)
  1. OMNISCAN [Suspect]
     Active Substance: GADODIAMIDE
     Dosage: UNK
     Route: 065
  2. OMNISCAN [Suspect]
     Active Substance: GADODIAMIDE
     Dosage: UNK
     Route: 065
  3. OMNISCAN [Suspect]
     Active Substance: GADODIAMIDE
     Dosage: UNK
     Route: 065
  4. GADOBUTROL. [Suspect]
     Active Substance: GADOBUTROL
     Indication: PRODUCT USED FOR UNKNOWN INDICATION
     Dosage: UNK UNK, SINGLE
     Route: 065
  5. GADOBUTROL. [Suspect]
     Active Substance: GADOBUTROL
     Dosage: UNK
     Route: 065
  6. OMNISCAN [Suspect]
     Active Substance: GADODIAMIDE
     Indication: PRODUCT USED FOR UNKNOWN INDICATION
     Dosage: UNK UNK, SINGLE
     Route: 065
  7. OMNISCAN [Suspect]
     Active Substance: GADODIAMIDE
     Dosage: UNK
     Route: 065

REACTIONS (1)
  - Nephrogenic systemic fibrosis [Unknown]
